FAERS Safety Report 11703942 (Version 1)
Quarter: 2015Q4

REPORT INFORMATION
  Report Type: Spontaneous
  Country: US (occurrence: None)
  Receive Date: 20151105
  Receipt Date: 20151105
  Transmission Date: 20160304
  Serious: Yes (Hospitalization)
  Sender: FDA-Public Use
  Company Number: None

PATIENT
  Age: 54 Year
  Sex: Male
  Weight: 94.8 kg

DRUGS (16)
  1. BENAZEPRIL [Concomitant]
     Active Substance: BENAZEPRIL HYDROCHLORIDE
  2. FUROSEMIDE. [Concomitant]
     Active Substance: FUROSEMIDE
  3. VALACYCLOVIR [Concomitant]
     Active Substance: VALACYCLOVIR HYDROCHLORIDE
  4. GABAPENTIN 800 MG [Suspect]
     Active Substance: GABAPENTIN
     Indication: VIITH NERVE PARALYSIS
     Route: 048
     Dates: start: 20150413, end: 20150430
  5. CLONIDINE. [Concomitant]
     Active Substance: CLONIDINE
  6. NAPROXEN. [Concomitant]
     Active Substance: NAPROXEN
  7. SILDENAFIL. [Concomitant]
     Active Substance: SILDENAFIL
  8. TRUVADA [Concomitant]
     Active Substance: EMTRICITABINE\TENOFOVIR DISOPROXIL FUMARATE
  9. HYDROCHLOROTHIAZIDE. [Concomitant]
     Active Substance: HYDROCHLOROTHIAZIDE
  10. METOPROLOL SUCCINATE. [Concomitant]
     Active Substance: METOPROLOL SUCCINATE
  11. AMLODIPINE [Concomitant]
     Active Substance: AMLODIPINE BESYLATE
  12. MUPIROCIN. [Concomitant]
     Active Substance: MUPIROCIN
  13. OMEPRAZOLE. [Concomitant]
     Active Substance: OMEPRAZOLE
  14. BUPROPION. [Concomitant]
     Active Substance: BUPROPION
  15. RALTEGRAVIR. [Concomitant]
     Active Substance: RALTEGRAVIR
  16. LORATADINE. [Concomitant]
     Active Substance: LORATADINE

REACTIONS (1)
  - Abdominal pain [None]

NARRATIVE: CASE EVENT DATE: 20150430
